FAERS Safety Report 12508954 (Version 1)
Quarter: 2016Q2

REPORT INFORMATION
  Report Type: Spontaneous
  Country: US (occurrence: US)
  Receive Date: 20160629
  Receipt Date: 20160629
  Transmission Date: 20160815
  Serious: No
  Sender: FDA-Public Use
  Company Number: US-WATSON-2016-12597

PATIENT
  Sex: Male

DRUGS (1)
  1. SORIATANE [Suspect]
     Active Substance: ACITRETIN
     Indication: ACNE
     Dosage: UNK UNK, UNKNOWN
     Route: 048
     Dates: start: 20160329

REACTIONS (1)
  - Alopecia [Not Recovered/Not Resolved]
